FAERS Safety Report 10247826 (Version 3)
Quarter: 2014Q3

REPORT INFORMATION
  Report Type: Spontaneous
  Country: JP (occurrence: JP)
  Receive Date: 20140619
  Receipt Date: 20140731
  Transmission Date: 20150326
  Serious: Yes (Death)
  Sender: FDA-Public Use
  Company Number: JP-EISAI INC-E2020-14168-SPO-JP

PATIENT
  Age: 79 Year
  Sex: Female
  Weight: 39 kg

DRUGS (7)
  1. ARICEPT [Suspect]
     Active Substance: DONEPEZIL HYDROCHLORIDE
     Indication: DEMENTIA ALZHEIMER^S TYPE
     Route: 048
     Dates: start: 20140505, end: 20140612
  2. LOXOPROFEN NA [Concomitant]
     Active Substance: LOXOPROFEN SODIUM
     Indication: PROCEDURAL PAIN
     Dosage: UNKNOWN
     Route: 048
     Dates: start: 20140603
  3. ZEPOLAS [Concomitant]
     Indication: PROCEDURAL PAIN
     Route: 048
     Dates: start: 20140606
  4. BONALON [Concomitant]
     Active Substance: ALENDRONATE SODIUM
     Indication: OSTEOPOROSIS
     Dosage: 1 DOSAGE FORM
     Route: 048
     Dates: end: 20140609
  5. LIXIANA [Concomitant]
     Indication: THERAPEUTIC PROCEDURE
     Route: 048
     Dates: start: 20140511, end: 20140517
  6. REBAMIPIDE [Concomitant]
     Active Substance: REBAMIPIDE
     Indication: PROCEDURAL PAIN
     Dosage: UNKNOWN
     Route: 048
     Dates: start: 20140603
  7. GOSHAJINKIGAN [Suspect]
     Active Substance: HERBALS
     Indication: OEDEMA
     Route: 048
     Dates: start: 20140505, end: 20140611

REACTIONS (1)
  - Renal failure acute [Fatal]

NARRATIVE: CASE EVENT DATE: 20140612
